FAERS Safety Report 10470672 (Version 2)
Quarter: 2014Q3

REPORT INFORMATION
  Report Type: Spontaneous
  Country: US (occurrence: US)
  Receive Date: 20140923
  Receipt Date: 20140923
  Transmission Date: 20150326
  Serious: Yes (Hospitalization)
  Sender: FDA-Public Use
  Company Number: US-GLAXOSMITHKLINE-A0839976A

PATIENT
  Sex: Female
  Weight: 80.9 kg

DRUGS (2)
  1. AVANDAMET [Suspect]
     Active Substance: METFORMIN HYDROCHLORIDE\ROSIGLITAZONE MALEATE
     Indication: TYPE 2 DIABETES MELLITUS
     Route: 048
     Dates: start: 20070327, end: 20070328
  2. AVANDIA [Suspect]
     Active Substance: ROSIGLITAZONE MALEATE
     Indication: DIABETES MELLITUS
     Dosage: 4MG TWICE PER DAY
     Route: 048
     Dates: start: 2001, end: 2003

REACTIONS (7)
  - Coronary artery disease [Unknown]
  - Heart valve incompetence [Unknown]
  - Cardiomyopathy [Unknown]
  - Bundle branch block left [Unknown]
  - Heart rate increased [Unknown]
  - Impaired work ability [Unknown]
  - Cardiomegaly [Unknown]
